FAERS Safety Report 7178918-9 (Version None)
Quarter: 2010Q4

REPORT INFORMATION
  Report Type: 
  Country: None (occurrence: None)
  Receive Date: 20101221
  Receipt Date: 20101209
  Transmission Date: 20110411
  Serious: Yes (Disabling)
  Sender: FDA-Public Use
  Company Number: FR-KINGPHARMUSA00001-K201001490

PATIENT
  Age: 40 Year
  Sex: Male

DRUGS (1)
  1. ALTACE [Suspect]
     Indication: HYPERTENSION
     Dosage: 5 MG, QD
     Route: 048
     Dates: start: 20101001, end: 20101125

REACTIONS (2)
  - DYSPEPSIA [None]
  - OESOPHAGITIS [None]
